FAERS Safety Report 16362796 (Version 1)
Quarter: 2019Q2

REPORT INFORMATION
  Report Type: Report from Study
  Country: US (occurrence: US)
  Receive Date: 20190528
  Receipt Date: 20190528
  Transmission Date: 20190711
  Serious: Yes (Other)
  Sender: FDA-Public Use
  Company Number: PHHY2018US160230

PATIENT
  Age: 58 Year
  Sex: Female

DRUGS (2)
  1. GILENYA [Suspect]
     Active Substance: FINGOLIMOD HYDROCHLORIDE
     Indication: MULTIPLE SCLEROSIS
     Dosage: UNK, QD
     Route: 048
  2. MAGNESIUM OXIDE. [Concomitant]
     Active Substance: MAGNESIUM OXIDE
     Indication: MUSCLE TIGHTNESS
     Dosage: 300 MG, BID
     Route: 065
     Dates: start: 20181022

REACTIONS (15)
  - Multiple sclerosis relapse [Recovered/Resolved]
  - Lymphocyte count decreased [Unknown]
  - High density lipoprotein decreased [Unknown]
  - Alanine aminotransferase increased [Unknown]
  - White blood cell count decreased [Unknown]
  - Aspartate aminotransferase increased [Unknown]
  - Low density lipoprotein increased [Unknown]
  - Muscle spasms [Unknown]
  - Neck pain [Unknown]
  - Blood cholesterol increased [Unknown]
  - Tremor [Recovered/Resolved]
  - Sleep disorder [Unknown]
  - Intraocular pressure increased [Recovered/Resolved]
  - Limb discomfort [Recovered/Resolved]
  - Headache [Unknown]

NARRATIVE: CASE EVENT DATE: 20181002
